FAERS Safety Report 9727616 (Version 1)
Quarter: 2013Q4

REPORT INFORMATION
  Report Type: Spontaneous
  Country: US (occurrence: US)
  Receive Date: 20131203
  Receipt Date: 20131203
  Transmission Date: 20140711
  Serious: Yes (Hospitalization)
  Sender: FDA-Public Use
  Company Number: US-BAYER-2013-147402

PATIENT
  Age: 30 Year
  Sex: Female

DRUGS (9)
  1. YAZ [Suspect]
  2. YASMIN [Suspect]
  3. PAXIL [Concomitant]
     Dosage: 20 MG, UNK
  4. CEFPROZIL [Concomitant]
     Dosage: 250 MG, UNK
  5. CLONAZEPAM [Concomitant]
     Dosage: 0.5 MG, UNK
  6. LORTAB [Concomitant]
  7. CLAFORAN [Concomitant]
  8. ZITHROMAX [Concomitant]
  9. ZOFRAN [Concomitant]

REACTIONS (1)
  - Pulmonary embolism [None]
